FAERS Safety Report 15470172 (Version 2)
Quarter: 2018Q4

REPORT INFORMATION
  Report Type: Spontaneous
  Country: GR (occurrence: GR)
  Receive Date: 20181005
  Receipt Date: 20181016
  Transmission Date: 20190205
  Serious: Yes (Death, Life-Threatening, Hospitalization, Other)
  Sender: FDA-Public Use
  Company Number: GR-SANIK-2018SA273258AA

PATIENT
  Age: 50 Year
  Sex: Male

DRUGS (14)
  1. HEPARIN [Suspect]
     Active Substance: HEPARIN SODIUM
     Dosage: 50 IU
     Route: 013
  2. BIVALIRUDIN. [Suspect]
     Active Substance: BIVALIRUDIN
     Dosage: 1.75 MG/KG (1 HOUR) (MAINTENANCE INFUSION)
  3. ACETYLSALICYLIC ACID [Suspect]
     Active Substance: ASPIRIN
     Indication: CORONARY ARTERY DISEASE
  4. SODIUM CHLORIDE. [Concomitant]
     Active Substance: SODIUM CHLORIDE
     Route: 042
  5. ISOSORBIDE MONONITRATE. [Suspect]
     Active Substance: ISOSORBIDE MONONITRATE
     Indication: CORONARY ARTERY DISEASE
  6. DIMETINDENE [Concomitant]
     Active Substance: DIMETHINDENE
     Dosage: 16 MG
  7. VALSARTAN. [Suspect]
     Active Substance: VALSARTAN
     Indication: CORONARY ARTERY DISEASE
  8. BIVALIRUDIN. [Suspect]
     Active Substance: BIVALIRUDIN
     Dosage: BOLUS 0.75 MG/KG, INJECTION MAINTENANCE INFUSION OF 1.75 MG/KG/HR
     Route: 042
  9. HYDROCORTISONE SODIUM SUCCINATE [Concomitant]
     Active Substance: HYDROCORTISONE SODIUM SUCCINATE
     Dosage: 500 MG
  10. DIMETINDENE [Concomitant]
     Active Substance: DIMETHINDENE
     Dosage: SECOND BOLUS
  11. CLOPIDOGREL BISULFATE. [Suspect]
     Active Substance: CLOPIDOGREL BISULFATE
     Indication: CORONARY ARTERY DISEASE
  12. METOPROLOL SALT NOT SPECIFIED [Suspect]
     Active Substance: METOPROLOL
     Indication: CORONARY ARTERY DISEASE
  13. ATORVASTATIN [Suspect]
     Active Substance: ATORVASTATIN
     Indication: CORONARY ARTERY DISEASE
  14. HYDROCORTISONE SODIUM SUCCINATE [Concomitant]
     Active Substance: HYDROCORTISONE SODIUM SUCCINATE
     Dosage: SECOND BOLUS OF HYDROCORTISONE

REACTIONS (11)
  - Blood pressure decreased [Fatal]
  - Ventricular tachycardia [Fatal]
  - Cardiac arrest [Fatal]
  - Rash [Fatal]
  - Heart rate increased [Fatal]
  - Pruritus [Fatal]
  - Chest discomfort [Fatal]
  - Vascular stent thrombosis [Fatal]
  - Hypersensitivity [Fatal]
  - Kounis syndrome [Fatal]
  - Ventricular fibrillation [Fatal]
